FAERS Safety Report 16201360 (Version 2)
Quarter: 2019Q2

REPORT INFORMATION
  Report Type: Report from Study
  Country: IN (occurrence: IN)
  Receive Date: 20190416
  Receipt Date: 20190613
  Transmission Date: 20190711
  Serious: Yes (Other)
  Sender: FDA-Public Use
  Company Number: IN-BIOGEN-2019BI00725795

PATIENT
  Age: 48 Year
  Sex: Female

DRUGS (1)
  1. TYSABRI [Suspect]
     Active Substance: NATALIZUMAB
     Indication: MULTIPLE SCLEROSIS
     Dosage: INFUSED OVER 1 HOUR
     Route: 042
     Dates: start: 20180203

REACTIONS (2)
  - Deafness [Not Recovered/Not Resolved]
  - Ear pain [Not Recovered/Not Resolved]

NARRATIVE: CASE EVENT DATE: 20190331
